FAERS Safety Report 8615986-9 (Version None)
Quarter: 2012Q3

REPORT INFORMATION
  Report Type: 
  Country: None (occurrence: None)
  Receive Date: 20120823
  Receipt Date: 20120817
  Transmission Date: 20120928
  Serious: Yes (Other)
  Sender: FDA-Public Use
  Company Number: CA-ROCHE-1005605

PATIENT
  Sex: Female
  Weight: 75 kg

DRUGS (13)
  1. VOLTAREN [Concomitant]
     Indication: RHEUMATOID ARTHRITIS
     Route: 048
  2. VITAMIN B-12 [Concomitant]
     Route: 058
  3. ASCORBIC ACID [Concomitant]
  4. MINOCYCLINE HCL [Concomitant]
     Indication: UNEVALUABLE EVENT
     Route: 048
  5. ZOPICLONE [Concomitant]
     Indication: SLEEP DISORDER
     Route: 048
  6. LORAZEPAM [Concomitant]
     Route: 048
  7. ECHINACEA [Concomitant]
  8. ACTEMRA [Suspect]
     Indication: RHEUMATOID ARTHRITIS
     Route: 042
     Dates: start: 20110315
  9. MORPHINE [Concomitant]
     Indication: PAIN
     Route: 048
  10. FLUTICASONE PROPIONATE [Concomitant]
     Route: 055
  11. ROACTEMRA [Suspect]
     Dosage: LAST DOSE OF ADMINISTRATION: 10/AUG/2012
     Route: 042
     Dates: start: 20120615
  12. SYNTHROID [Concomitant]
     Indication: THYROID DISORDER
     Route: 048
  13. PREDNISONE TAB [Concomitant]
     Indication: RHEUMATOID ARTHRITIS
     Route: 048

REACTIONS (5)
  - PLATELET COUNT DECREASED [None]
  - GASTROOESOPHAGEAL REFLUX DISEASE [None]
  - CONTUSION [None]
  - CHOLECYSTECTOMY [None]
  - HIATUS HERNIA [None]
